FAERS Safety Report 7323300-4 (Version None)
Quarter: 2011Q1

REPORT INFORMATION
  Report Type: 
  Country: None (occurrence: None)
  Receive Date: 20110217
  Receipt Date: 20110209
  Transmission Date: 20110831
  Serious: Yes (Hospitalization)
  Sender: FDA-Public Use
  Company Number: 027232

PATIENT
  Sex: Male
  Weight: 106 kg

DRUGS (1)
  1. CIMZIA [Suspect]
     Indication: RHEUMATOID ARTHRITIS
     Dosage: (200 MG 1X/2 WEEKS SUBCUTANEOUS)
     Route: 058
     Dates: start: 20100108, end: 20101101

REACTIONS (6)
  - VENOUS INSUFFICIENCY [None]
  - BACK PAIN [None]
  - CELLULITIS [None]
  - MALAISE [None]
  - CEREBROVASCULAR ACCIDENT [None]
  - LACERATION [None]
